FAERS Safety Report 17465989 (Version 6)
Quarter: 2020Q3

REPORT INFORMATION
  Report Type: Other
  Country: US (occurrence: US)
  Receive Date: 20200227
  Receipt Date: 20200828
  Transmission Date: 20201102
  Serious: Yes (Hospitalization, Other)
  Sender: FDA-Public Use
  Company Number: US-ROCHE-2555164

PATIENT
  Age: 53 Year
  Sex: Female
  Weight: 69.46 kg

DRUGS (5)
  1. KLONOPIN [Suspect]
     Active Substance: CLONAZEPAM
     Indication: RESTLESS LEGS SYNDROME
     Dosage: ONGOING
     Route: 048
     Dates: start: 2018
  2. CLARITIN [Concomitant]
     Active Substance: LORATADINE
     Indication: HYPERSENSITIVITY
     Route: 048
  3. FLUTICASONE PROPIONATE. [Concomitant]
     Active Substance: FLUTICASONE PROPIONATE
     Indication: HYPERSENSITIVITY
     Dosage: 2 SPRAYS BOTH NOSTRILS
     Route: 045
  4. OCREVUS [Suspect]
     Active Substance: OCRELIZUMAB
     Indication: MULTIPLE SCLEROSIS
     Route: 042
     Dates: start: 20181026
  5. OCREVUS [Suspect]
     Active Substance: OCRELIZUMAB
     Indication: RELAPSING-REMITTING MULTIPLE SCLEROSIS
     Route: 042
     Dates: start: 201709

REACTIONS (13)
  - Fall [Unknown]
  - Dizziness [Unknown]
  - Neck injury [Not Recovered/Not Resolved]
  - Off label use [Unknown]
  - Craniocerebral injury [Recovered/Resolved]
  - Multiple sclerosis [Unknown]
  - Herpes zoster [Recovered/Resolved]
  - Balance disorder [Unknown]
  - Paraesthesia [Unknown]
  - Lip injury [Recovered/Resolved]
  - Loss of consciousness [Recovered/Resolved]
  - Intentional product use issue [Unknown]
  - Chills [Unknown]

NARRATIVE: CASE EVENT DATE: 201902
